FAERS Safety Report 5240677-4 (Version None)
Quarter: 2007Q1

REPORT INFORMATION
  Report Type: 
  Country: None (occurrence: None)
  Receive Date: 20061208
  Receipt Date: 20060508
  Transmission Date: 20070707
  Serious: Yes (Other)
  Sender: FDA-Public Use
  Company Number: 2006UW05816

PATIENT
  Age: 39 Year
  Sex: Male
  Weight: 101.6 kg

DRUGS (3)
  1. CRESTOR [Suspect]
     Indication: HYPERCHOLESTEROLAEMIA
     Dosage: 10 MG DAILY PO
     Route: 048
  2. CRESTOR [Suspect]
     Indication: HYPERCHOLESTEROLAEMIA
     Dosage: 20 MG QD PO
     Route: 048
  3. ALLEGRA [Concomitant]

REACTIONS (4)
  - AGITATION [None]
  - FEELING ABNORMAL [None]
  - MOOD SWINGS [None]
  - PERSONALITY CHANGE [None]
